FAERS Safety Report 4653299-0 (Version None)
Quarter: 2005Q2

REPORT INFORMATION
  Report Type: 
  Country: None (occurrence: None)
  Receive Date: 20050503
  Receipt Date: 20050503
  Transmission Date: 20051028
  Serious: Yes (Death)
  Sender: FDA-Public Use
  Company Number: None

PATIENT
  Age: 68 Year
  Sex: Male
  Weight: 92.0802 kg

DRUGS (3)
  1. LIPITOR [Suspect]
     Indication: HYPERCHOLESTEROLAEMIA
     Dosage: 40MG  PO QD
     Route: 048
  2. HUMULIN INSULIN [Concomitant]
  3. LISINOPRIL [Concomitant]

REACTIONS (3)
  - BILE DUCT CANCER [None]
  - LIVER FUNCTION TEST ABNORMAL [None]
  - METASTASIS [None]
